FAERS Safety Report 21826911 (Version 1)
Quarter: 2023Q1

REPORT INFORMATION
  Report Type: Report from Study
  Country: NL (occurrence: NL)
  Receive Date: 20230106
  Receipt Date: 20230106
  Transmission Date: 20230417
  Serious: Yes (Hospitalization)
  Sender: FDA-Public Use
  Company Number: NL-ABBVIE-4259028

PATIENT
  Age: 79 Year
  Sex: Female

DRUGS (5)
  1. CARBIDOPA\LEVODOPA [Suspect]
     Active Substance: CARBIDOPA\LEVODOPA
     Indication: Parkinson^s disease
     Dates: start: 20190205
  2. CARBIDOPA\LEVODOPA [Suspect]
     Active Substance: CARBIDOPA\LEVODOPA
     Dosage: MD 14.0 ML; CD 4.7 ML/HR DURING 16 HOURS; ED 2.0 ML
     Route: 050
  3. RIVASTIGMINE [Concomitant]
     Active Substance: RIVASTIGMINE
     Indication: Product used for unknown indication
     Dosage: 9.5 MG
     Route: 003
  4. CLOZAPINE [Concomitant]
     Active Substance: CLOZAPINE
     Indication: Hallucination
     Route: 065
  5. OXAZEPAM [Concomitant]
     Active Substance: OXAZEPAM
     Indication: Fear
     Dosage: FORM STRENGTH: 10 MILLIGRAM?FREQUENCY TEXT: ONCE A DAY IF NEEDED
     Route: 048
     Dates: start: 20210901

REACTIONS (1)
  - Transient ischaemic attack [Recovering/Resolving]

NARRATIVE: CASE EVENT DATE: 20221201
